FAERS Safety Report 17291641 (Version 1)
Quarter: 2020Q1

REPORT INFORMATION
  Report Type: Spontaneous
  Country: US (occurrence: US)
  Receive Date: 20191231
  Receipt Date: 20191231
  Transmission Date: 20200409
  Serious: No
  Sender: FDA-Public Use
  Company Number: None

PATIENT
  Age: 64 Year
  Sex: Male

DRUGS (1)
  1. AVONEX PEN [Suspect]
     Active Substance: INTERFERON BETA-1A
     Indication: MULTIPLE SCLEROSIS
     Dosage: ?          OTHER STRENGTH:30/0.5 UG/M;?
     Route: 030
     Dates: start: 20170705

REACTIONS (3)
  - Device issue [None]
  - Injury associated with device [None]
  - Needle issue [None]

NARRATIVE: CASE EVENT DATE: 20191221
